FAERS Safety Report 9749041 (Version 2)
Quarter: 2014Q1

REPORT INFORMATION
  Report Type: Spontaneous
  Country: US (occurrence: US)
  Receive Date: 20131212
  Receipt Date: 20140312
  Transmission Date: 20141002
  Serious: No
  Sender: FDA-Public Use
  Company Number: US-INCYTE CORPORATION-2013IN002165

PATIENT
  Sex: 0

DRUGS (9)
  1. JAKAFI [Suspect]
     Indication: LEUKOCYTOSIS
     Dosage: 10 MG, BID
     Route: 048
     Dates: start: 201308
  2. JAKAFI [Suspect]
     Indication: MYELOPROLIFERATIVE DISORDER
  3. BUMETANIDE [Concomitant]
     Dosage: 1 MG, UNK
  4. PROTONIX DR [Concomitant]
     Dosage: 20 MG, UNK
  5. LIBRAX [Concomitant]
     Dosage: UNK
  6. BYSTOLIC [Concomitant]
     Dosage: 10 MG, UNK
  7. BIOTIN [Concomitant]
     Dosage: 1,000 MCG, UNK
  8. ULORIC [Concomitant]
  9. KLONOPIN [Concomitant]

REACTIONS (5)
  - Dyspnoea [Recovered/Resolved]
  - Oedema [Recovered/Resolved]
  - Weight increased [Unknown]
  - Haemoglobin decreased [Unknown]
  - Haematocrit decreased [Unknown]
